FAERS Safety Report 4418006-5 (Version None)
Quarter: 2004Q3

REPORT INFORMATION
  Report Type: 
  Country: None (occurrence: None)
  Receive Date: 20040804
  Receipt Date: 20040721
  Transmission Date: 20050211
  Serious: Yes (Life-Threatening)
  Sender: FDA-Public Use
  Company Number: 2004-BP-06122AU

PATIENT
  Age: 28 Year
  Sex: Male

DRUGS (2)
  1. MOBIC [Suspect]
     Indication: JOINT INJURY
     Dosage: 7.5 MG (7.5 MG, DAILY), PO
     Route: 048
     Dates: start: 20040716, end: 20040716
  2. DIMETAPP [Concomitant]

REACTIONS (1)
  - ANGIONEUROTIC OEDEMA [None]
